FAERS Safety Report 4998986-X (Version None)
Quarter: 2006Q2

REPORT INFORMATION
  Report Type: 
  Country: None (occurrence: None)
  Receive Date: 20060510
  Receipt Date: 20050414
  Transmission Date: 20061013
  Serious: Yes (Hospitalization, Other)
  Sender: FDA-Public Use
  Company Number: US-MERCK-0504USA02954

PATIENT
  Age: 58 Year
  Sex: Female
  Weight: 86 kg

DRUGS (5)
  1. VIOXX [Suspect]
     Indication: SYNOVIAL CYST
     Route: 048
     Dates: start: 20030701, end: 20040201
  2. ZOCOR [Concomitant]
     Route: 065
  3. ZYRTEC [Concomitant]
     Route: 065
  4. NEXIUM [Concomitant]
     Route: 065
  5. LEVOTHYROXINE SODIUM [Concomitant]
     Route: 065

REACTIONS (10)
  - CARDIAC FAILURE [None]
  - CEREBROVASCULAR ACCIDENT [None]
  - HEPATOCELLULAR DAMAGE [None]
  - HYPERTENSION [None]
  - MYOCARDIAL INFARCTION [None]
  - NEOPLASM [None]
  - PRESCRIBED OVERDOSE [None]
  - RENAL DISORDER [None]
  - THROMBOSIS [None]
  - ULCER [None]
